FAERS Safety Report 6935859-7 (Version None)
Quarter: 2010Q3

REPORT INFORMATION
  Report Type: 
  Country: None (occurrence: None)
  Receive Date: 20100819
  Receipt Date: 20100819
  Transmission Date: 20110219
  Serious: Yes (Life-Threatening, Hospitalization)
  Sender: FDA-Public Use
  Company Number: None

PATIENT
  Sex: Female
  Weight: 86.4 kg

DRUGS (3)
  1. DESOGESTRELO/ETHINYLESTRADIOL 0.15MG DESOGESTREL AND 30 MCG ETHINYL ES [Suspect]
     Indication: CONTRACEPTION
     Dosage: ONE TABLET DAILY ORAL
     Route: 048
     Dates: start: 20100715
  2. LEXAPRO [Concomitant]
  3. LEVOXYL [Concomitant]

REACTIONS (4)
  - MUSCULAR WEAKNESS [None]
  - PARAESTHESIA [None]
  - SENSATION OF HEAVINESS [None]
  - TRANSIENT ISCHAEMIC ATTACK [None]
